FAERS Safety Report 7197241 (Version 2)
Quarter: 2018Q3

REPORT INFORMATION
  Report Type: Spontaneous
  Country: US (occurrence: US)
  Receive Date: 20091202
  Receipt Date: 20180821
  Transmission Date: 20181010
  Serious: Yes (Death, Other)
  Sender: FDA-Public Use
  Company Number: US-PFIZER INC-2009296282

PATIENT
  Age: 37 Year
  Sex: Male

DRUGS (2)
  1. ZOLOFT [Suspect]
     Active Substance: SERTRALINE HYDROCHLORIDE
     Indication: INSOMNIA
     Dosage: 50 MG, UNK
  2. ZOLOFT [Suspect]
     Active Substance: SERTRALINE HYDROCHLORIDE
     Indication: ANXIETY
     Dosage: 25 MG, UNK
     Dates: start: 200306

REACTIONS (18)
  - Hyperhidrosis [Unknown]
  - Dysphonia [Unknown]
  - Crying [Unknown]
  - Completed suicide [Fatal]
  - Abnormal behaviour [Unknown]
  - Anxiety [Unknown]
  - Tearfulness [Unknown]
  - Dysstasia [Unknown]
  - Tremor [Unknown]
  - Akathisia [Unknown]
  - Irritability [Unknown]
  - Feeling abnormal [Unknown]
  - Night sweats [Unknown]
  - Weight decreased [Unknown]
  - Restlessness [Unknown]
  - Diarrhoea [Unknown]
  - Condition aggravated [Unknown]
  - Insomnia [Unknown]

NARRATIVE: CASE EVENT DATE: 2003
